FAERS Safety Report 23815873 (Version 4)
Quarter: 2024Q2

REPORT INFORMATION
  Report Type: Spontaneous
  Country: US (occurrence: US)
  Receive Date: 20240503
  Receipt Date: 20240522
  Transmission Date: 20240716
  Serious: Yes (Other)
  Sender: FDA-Public Use
  Company Number: US-SANDOZ-SDZ2024US044927

PATIENT
  Sex: Female

DRUGS (1)
  1. CIPRODEX [Suspect]
     Active Substance: CIPROFLOXACIN HYDROCHLORIDE\DEXAMETHASONE
     Indication: Ear pain
     Dosage: UNK
     Route: 065

REACTIONS (5)
  - Surgery [Unknown]
  - Ear discomfort [Unknown]
  - Procedural pain [Unknown]
  - Product dispensing error [Unknown]
  - Product availability issue [Unknown]
